FAERS Safety Report 12503949 (Version 2)
Quarter: 2016Q4

REPORT INFORMATION
  Report Type: Report from Study
  Country: HK (occurrence: HK)
  Receive Date: 20160628
  Receipt Date: 20161014
  Transmission Date: 20170207
  Serious: Yes (Hospitalization)
  Sender: FDA-Public Use
  Company Number: HK-ASTELLAS-2015JP000468AA

PATIENT
  Age: 82 Year
  Sex: Male
  Weight: 60 kg

DRUGS (6)
  1. NEXIUM [Concomitant]
     Active Substance: ESOMEPRAZOLE MAGNESIUM
     Indication: GASTROINTESTINAL HAEMORRHAGE
     Route: 048
     Dates: start: 20150112
  2. ENZALUTAMIDE [Suspect]
     Active Substance: ENZALUTAMIDE
     Indication: HORMONE-REFRACTORY PROSTATE CANCER
     Route: 048
     Dates: start: 20141229
  3. TRIACT [Concomitant]
     Indication: ARTHRALGIA
     Route: 048
     Dates: start: 20150101, end: 20150107
  4. UNKNOWNDRUG [Concomitant]
     Active Substance: UNSPECIFIED INGREDIENT
     Indication: ARTHRALGIA
     Route: 048
     Dates: start: 20150101, end: 20150107
  5. PANADOL [Concomitant]
     Active Substance: ACETAMINOPHEN
     Indication: ARTHRALGIA
     Route: 048
     Dates: start: 20150101, end: 20150107
  6. UNKNOWNDRUG [Concomitant]
     Active Substance: UNSPECIFIED INGREDIENT
     Indication: ARTHRALGIA
     Dosage: 0.5 MG, THRICE DAILY
     Route: 048
     Dates: start: 20150101, end: 20150107

REACTIONS (5)
  - Anaemia [Recovered/Resolved]
  - Acute coronary syndrome [Recovered/Resolved]
  - Gastrointestinal haemorrhage [Recovered/Resolved]
  - Contusion [Recovered/Resolved]
  - Dizziness [Recovered/Resolved]

NARRATIVE: CASE EVENT DATE: 20150107
